FAERS Safety Report 10692991 (Version 3)
Quarter: 2015Q1

REPORT INFORMATION
  Report Type: Spontaneous
  Country: US (occurrence: US)
  Receive Date: 20150106
  Receipt Date: 20150302
  Transmission Date: 20150720
  Serious: No
  Sender: FDA-Public Use
  Company Number: US-009507513-1110USA01305

PATIENT
  Sex: Male

DRUGS (1)
  1. PROPECIA [Suspect]
     Active Substance: FINASTERIDE
     Indication: ALOPECIA
     Dosage: 1 MG, UNK
     Route: 048
     Dates: start: 2007, end: 20100107

REACTIONS (10)
  - Benign prostatic hyperplasia [Unknown]
  - Generalised anxiety disorder [Unknown]
  - Libido decreased [Unknown]
  - Depression [Unknown]
  - Melanocytic naevus [Unknown]
  - Hypogonadism [Unknown]
  - Sacroiliitis [Unknown]
  - Erectile dysfunction [Unknown]
  - Mole excision [Unknown]
  - Cardiac aneurysm [Unknown]

NARRATIVE: CASE EVENT DATE: 20091203
